FAERS Safety Report 5126882-6 (Version None)
Quarter: 2006Q4

REPORT INFORMATION
  Report Type: 
  Country: None (occurrence: None)
  Receive Date: 20061013
  Receipt Date: 20060807
  Transmission Date: 20070319
  Serious: Yes (Other)
  Sender: FDA-Public Use
  Company Number: US-ROCHE-458779

PATIENT
  Age: 51 Year
  Sex: Female
  Weight: 51.3 kg

DRUGS (1)
  1. BONIVA [Suspect]
     Indication: OSTEOPOROSIS
     Route: 065
     Dates: start: 20060805, end: 20060805

REACTIONS (2)
  - BLOOD PRESSURE INCREASED [None]
  - RASH [None]
